FAERS Safety Report 9294254 (Version 1)
Quarter: 2013Q2

REPORT INFORMATION
  Report Type: Spontaneous
  Country: US (occurrence: US)
  Receive Date: 20130516
  Receipt Date: 20130516
  Transmission Date: 20140414
  Serious: No
  Sender: FDA-Public Use
  Company Number: US-009507513-1305USA004957

PATIENT
  Age: 82 Year
  Sex: Male

DRUGS (6)
  1. DULERA [Suspect]
     Indication: CHRONIC OBSTRUCTIVE PULMONARY DISEASE
     Dosage: 2 PUFFS IN THE AM AND TWO PUFFS IN THE PM
     Route: 055
     Dates: start: 20130417
  2. SPIRIVA [Concomitant]
  3. LASIX (FUROSEMIDE) [Concomitant]
  4. ZETIA [Concomitant]
  5. CRESTOR [Concomitant]
  6. CARVEDILOL [Concomitant]

REACTIONS (2)
  - Tongue coated [Not Recovered/Not Resolved]
  - Drug dose omission [Unknown]
